FAERS Safety Report 18746698 (Version 4)
Quarter: 2021Q3

REPORT INFORMATION
  Report Type: Report from Study
  Country: US (occurrence: US)
  Receive Date: 20210115
  Receipt Date: 20210915
  Transmission Date: 20211014
  Serious: Yes (Other)
  Sender: FDA-Public Use
  Company Number: NVSC2021US006643

PATIENT
  Sex: Female

DRUGS (1)
  1. KESIMPTA [Suspect]
     Active Substance: OFATUMUMAB
     Indication: MULTIPLE SCLEROSIS
     Dosage: UNK
     Route: 065

REACTIONS (5)
  - Multiple sclerosis relapse [Unknown]
  - Hypoaesthesia [Unknown]
  - Pain in extremity [Unknown]
  - Drug ineffective [Unknown]
  - Pain [Unknown]
